FAERS Safety Report 9690595 (Version 4)
Quarter: 2014Q3

REPORT INFORMATION
  Report Type: Report from Study
  Country: BR (occurrence: BR)
  Receive Date: 20131115
  Receipt Date: 20140703
  Transmission Date: 20150326
  Serious: Yes (Disabling, Other)
  Sender: FDA-Public Use
  Company Number: PHHY2013BR126475

PATIENT
  Sex: Female
  Weight: 63 kg

DRUGS (6)
  1. ACLASTA [Suspect]
     Active Substance: ZOLEDRONIC ACID
     Indication: OSTEOPOROSIS
     Dosage: 5 MG, UNK
     Route: 042
     Dates: start: 2012
  2. CALCIUM [Concomitant]
     Active Substance: CALCIUM
     Indication: OSTEOPOROSIS
     Dosage: 1 DF, QD
     Dates: start: 1996
  3. CORDAREX [Concomitant]
     Active Substance: AMIODARONE
     Indication: HYPERTENSION
     Dosage: 1 DF, QD
     Dates: start: 2007
  4. CORATEX [Concomitant]
     Indication: HYPERTENSION
     Dosage: 5 MG PER DAY
     Route: 048
     Dates: start: 2006
  5. ACLASTA [Suspect]
     Active Substance: ZOLEDRONIC ACID
     Dosage: 5 MG, UNK
     Route: 042
     Dates: start: 2013
  6. CALCIUM D3 [Concomitant]
     Active Substance: CALCIUM\CHOLECALCIFEROL
     Dosage: UNK UKN, UNK
     Dates: start: 1996

REACTIONS (4)
  - Abasia [Unknown]
  - Varicose vein [Unknown]
  - Fall [Recovered/Resolved]
  - Femur fracture [Recovered/Resolved]
